FAERS Safety Report 24100442 (Version 1)
Quarter: 2024Q3

REPORT INFORMATION
  Report Type: Spontaneous
  Country: US (occurrence: US)
  Receive Date: 20240717
  Receipt Date: 20240717
  Transmission Date: 20241016
  Serious: No
  Sender: NOVO NORDISK
  Company Number: US-NOVOPROD-1209301

PATIENT

DRUGS (1)
  1. OZEMPIC [Suspect]
     Active Substance: SEMAGLUTIDE
     Indication: Obesity
     Dosage: .50MG
     Route: 058
     Dates: start: 20230926, end: 20240104

REACTIONS (2)
  - Hepatobiliary scan abnormal [Unknown]
  - Product use in unapproved indication [Unknown]
